FAERS Safety Report 8227654-6 (Version None)
Quarter: 2012Q1

REPORT INFORMATION
  Report Type: 
  Country: None (occurrence: None)
  Receive Date: 20120322
  Receipt Date: 20120320
  Transmission Date: 20120608
  Serious: No
  Sender: FDA-Public Use
  Company Number: US-PFIZER INC-2012073187

PATIENT
  Sex: Male

DRUGS (1)
  1. ADVIL PM [Suspect]
     Dosage: TWO CAPLETS DAILY
     Route: 048

REACTIONS (2)
  - INCORRECT DOSE ADMINISTERED [None]
  - HYPERSOMNIA [None]
